FAERS Safety Report 24435359 (Version 1)
Quarter: 2024Q4

REPORT INFORMATION
  Report Type: Spontaneous
  Country: US (occurrence: US)
  Receive Date: 20241015
  Receipt Date: 20241015
  Transmission Date: 20250115
  Serious: No
  Sender: DR REDDYS
  Company Number: US-DRL-USA-LIT/USA/24/0015055

PATIENT
  Age: 43 Year
  Sex: Male

DRUGS (6)
  1. DOXYCYCLINE [Suspect]
     Active Substance: DOXYCYCLINE
     Indication: Campylobacter infection
     Dosage: FOR A PLANNED 4-WEEK COURSE,
     Dates: start: 202403
  2. CEFEPIME [Concomitant]
     Active Substance: CEFEPIME HYDROCHLORIDE
     Indication: Campylobacter infection
     Dosage: PLANNED 4-WEEK COURSE
     Dates: start: 202403
  3. ERTAPENEM [Concomitant]
     Active Substance: ERTAPENEM
     Indication: Campylobacter infection
     Dosage: PLANNED 4-WEEK COURSE
     Dates: start: 202401
  4. immunoglobulin [Concomitant]
     Indication: Bruton^s agammaglobulinaemia
     Dosage: EVERY  3 WEEKS
     Route: 042
  5. PREDNISONE [Concomitant]
     Active Substance: PREDNISONE
     Indication: Bruton^s agammaglobulinaemia
     Dosage: FOR  SEVERAL  YEARS
  6. VEDOLIZUMAB [Concomitant]
     Active Substance: VEDOLIZUMAB
     Indication: Inflammatory bowel disease

REACTIONS (2)
  - Photosensitivity reaction [Unknown]
  - Product use in unapproved indication [Unknown]
